FAERS Safety Report 7201608-0 (Version None)
Quarter: 2010Q4

REPORT INFORMATION
  Report Type: 
  Country: None (occurrence: None)
  Receive Date: 20101216
  Receipt Date: 20101207
  Transmission Date: 20110411
  Serious: Yes (Hospitalization)
  Sender: FDA-Public Use
  Company Number: 2008JP003598

PATIENT
  Age: 41 Year
  Sex: Female

DRUGS (36)
  1. TACROLIMUS [Suspect]
     Indication: LUPUS NEPHRITIS
     Dosage: SEE IMAGE
     Route: 048
     Dates: start: 20071128, end: 20080108
  2. TACROLIMUS [Suspect]
     Indication: LUPUS NEPHRITIS
     Dosage: SEE IMAGE
     Route: 048
     Dates: start: 20080109, end: 20080205
  3. TACROLIMUS [Suspect]
     Indication: LUPUS NEPHRITIS
     Dosage: SEE IMAGE
     Route: 048
     Dates: start: 20080206, end: 20080304
  4. TACROLIMUS [Suspect]
     Indication: LUPUS NEPHRITIS
     Dosage: SEE IMAGE
     Route: 048
     Dates: start: 20080305, end: 20080401
  5. TACROLIMUS [Suspect]
     Indication: LUPUS NEPHRITIS
     Dosage: SEE IMAGE
     Route: 048
     Dates: start: 20080416, end: 20080527
  6. TACROLIMUS [Suspect]
     Indication: LUPUS NEPHRITIS
     Dosage: SEE IMAGE
     Route: 048
     Dates: start: 20080528, end: 20090709
  7. TACROLIMUS [Suspect]
     Indication: LUPUS NEPHRITIS
     Dosage: SEE IMAGE
     Route: 048
     Dates: start: 20090731, end: 20100131
  8. PREDNISOLONE [Suspect]
     Indication: LUPUS NEPHRITIS
     Dosage: SEE IMAGE
     Route: 048
     Dates: start: 20071128, end: 20080109
  9. PREDNISOLONE [Suspect]
     Indication: LUPUS NEPHRITIS
     Dosage: SEE IMAGE
     Route: 048
     Dates: start: 20080110, end: 20080206
  10. PREDNISOLONE [Suspect]
     Indication: LUPUS NEPHRITIS
     Dosage: SEE IMAGE
     Route: 048
     Dates: start: 20080207, end: 20080305
  11. PREDNISOLONE [Suspect]
     Indication: LUPUS NEPHRITIS
     Dosage: SEE IMAGE
     Route: 048
     Dates: start: 20080306, end: 20080528
  12. PREDNISOLONE [Suspect]
     Indication: LUPUS NEPHRITIS
     Dosage: SEE IMAGE
     Route: 048
     Dates: start: 20080529, end: 20080818
  13. PREDNISOLONE [Suspect]
     Indication: LUPUS NEPHRITIS
     Dosage: SEE IMAGE
     Route: 048
     Dates: start: 20080819, end: 20090313
  14. PREDNISOLONE [Suspect]
     Indication: LUPUS NEPHRITIS
     Dosage: SEE IMAGE
     Route: 048
     Dates: start: 20090314, end: 20091023
  15. PREDNISOLONE [Suspect]
     Indication: LUPUS NEPHRITIS
     Dosage: SEE IMAGE
     Route: 048
     Dates: start: 20091203, end: 20100106
  16. PREDNISOLONE [Suspect]
     Indication: LUPUS NEPHRITIS
     Dosage: SEE IMAGE
     Route: 048
     Dates: start: 20100107, end: 20100224
  17. PREDNISOLONE [Suspect]
     Indication: LUPUS NEPHRITIS
     Dosage: SEE IMAGE
     Route: 048
     Dates: start: 20100225, end: 20100407
  18. PREDNISOLONE [Suspect]
     Indication: LUPUS NEPHRITIS
     Dosage: SEE IMAGE
     Route: 048
     Dates: start: 20100408, end: 20100707
  19. PREDNISOLONE [Suspect]
     Indication: LUPUS NEPHRITIS
     Dosage: SEE IMAGE
     Route: 048
     Dates: start: 20091024, end: 20101202
  20. PREDNISOLONE [Suspect]
     Indication: LUPUS NEPHRITIS
     Dosage: SEE IMAGE
     Route: 048
     Dates: start: 20100708
  21. CANDESARTAN CILEXETIL [Concomitant]
  22. BAKTA (SULFAMETHOXAZOLE, TRIMETHOPRIM) [Concomitant]
  23. LIPITOR [Concomitant]
  24. TAKEPRON (LANSOPRAZOLE) [Concomitant]
  25. ROCALTROL [Concomitant]
  26. FOSAMAC (ALENDRONATE SODIUM) [Concomitant]
  27. LOXONIN (LOXOPROFEN SODIUM) [Concomitant]
  28. DEPAKENE [Concomitant]
  29. PAXIL [Concomitant]
  30. DEPAS (ETIZOLAM) [Concomitant]
  31. FERROMIA (FEROUS SODIUM CITRATE) [Concomitant]
  32. URSO 250 [Concomitant]
  33. SERTRALINE HYDROCHLORIDE [Concomitant]
  34. TOFRANIL [Concomitant]
  35. LENDORM [Concomitant]
  36. METHYLPREDNISOLONE [Concomitant]

REACTIONS (12)
  - ANAEMIA [None]
  - ARTHRALGIA [None]
  - BILIARY CIRRHOSIS PRIMARY [None]
  - BLOOD CHOLESTEROL INCREASED [None]
  - DIABETES MELLITUS [None]
  - DYSMENORRHOEA [None]
  - FEMORAL NECK FRACTURE [None]
  - GAMMA-GLUTAMYLTRANSFERASE INCREASED [None]
  - HYPERLIPIDAEMIA [None]
  - LEUKOCYTOSIS [None]
  - OSTEONECROSIS [None]
  - SPINAL COMPRESSION FRACTURE [None]
